FAERS Safety Report 4450295-3 (Version None)
Quarter: 2004Q3

REPORT INFORMATION
  Report Type: 
  Country: None (occurrence: None)
  Receive Date: 20040914
  Receipt Date: 20040831
  Transmission Date: 20050211
  Serious: Yes (Other)
  Sender: FDA-Public Use
  Company Number: 2004060376

PATIENT
  Age: 85 Year
  Sex: Male

DRUGS (6)
  1. NORVASC [Suspect]
     Indication: HYPERTENSION
     Dosage: 2.5 MG (1 IN 1 D), ORAL
     Route: 048
     Dates: start: 20040622, end: 20040803
  2. FUROSEMIDE [Concomitant]
  3. BETAHISTINE HYDROCHLORIDE) (BETAHISTINE HYDROCHLORIDE) [Concomitant]
  4. IFENPRODIL TARTRATE (IFENPRODILO TARTRATE) [Concomitant]
  5. CFIMETIDINE (CIMETIDINE) [Concomitant]
  6. TIZANIDINE HCL [Concomitant]

REACTIONS (6)
  - BLOOD PRESSURE SYSTOLIC INCREASED [None]
  - DRUG INEFFECTIVE [None]
  - OEDEMA [None]
  - OEDEMA PERIPHERAL [None]
  - RENAL FAILURE CHRONIC [None]
  - RENAL IMPAIRMENT [None]
